APPROVED DRUG PRODUCT: RAMELTEON
Active Ingredient: RAMELTEON
Strength: 8MG
Dosage Form/Route: TABLET;ORAL
Application: A213815 | Product #001 | TE Code: AB
Applicant: APPCO PHARMA LLC
Approved: Oct 26, 2020 | RLD: No | RS: No | Type: RX